FAERS Safety Report 7637645-1 (Version None)
Quarter: 2011Q3

REPORT INFORMATION
  Report Type: 
  Country: None (occurrence: None)
  Receive Date: 20110726
  Receipt Date: 20110720
  Transmission Date: 20111222
  Serious: Yes (Disabling)
  Sender: FDA-Public Use
  Company Number: CA-MERCK-1105USA02066

PATIENT
  Age: 54 Year
  Sex: Female

DRUGS (3)
  1. SINEMET CR [Suspect]
     Route: 048
     Dates: start: 20110101
  2. SYNTHROID [Concomitant]
     Route: 065
  3. SINEMET CR [Suspect]
     Indication: PARKINSON'S DISEASE
     Route: 048
     Dates: start: 20030101, end: 20110401

REACTIONS (3)
  - MOVEMENT DISORDER [None]
  - THERAPEUTIC RESPONSE DECREASED [None]
  - DYSKINESIA [None]
